FAERS Safety Report 8958606 (Version 1)
Quarter: 2012Q4

REPORT INFORMATION
  Report Type: Spontaneous
  Country: US (occurrence: None)
  Receive Date: 20121205
  Receipt Date: 20121205
  Transmission Date: 20130627
  Serious: No
  Sender: FDA-Public Use
  Company Number: None

PATIENT
  Sex: Male
  Weight: 63.5 kg

DRUGS (1)
  1. AVONEX PEN - BIOGEN - IDEC [Suspect]
     Indication: MS
     Dosage: 1 pen  weekly  injection
     Route: 051
     Dates: start: 201209, end: 201211

REACTIONS (1)
  - Unevaluable event [None]
